FAERS Safety Report 10202047 (Version 1)
Quarter: 2014Q2

REPORT INFORMATION
  Report Type: Spontaneous
  Country: US (occurrence: US)
  Receive Date: 20140528
  Receipt Date: 20140528
  Transmission Date: 20141212
  Serious: Yes (Hospitalization)
  Sender: FDA-Public Use
  Company Number: US-GLAXOSMITHKLINE-A1074040A

PATIENT
  Age: 74 Year
  Sex: Male

DRUGS (4)
  1. VOTRIENT [Suspect]
     Indication: SARCOMA
     Dosage: 800MG PER DAY
     Route: 048
     Dates: start: 201308
  2. GLIMEPIRIDE [Concomitant]
  3. ASPIRIN [Concomitant]
  4. TRAMADOL [Concomitant]

REACTIONS (5)
  - Haematochezia [Recovered/Resolved]
  - Muscular weakness [Recovered/Resolved]
  - Sinusitis [Recovered/Resolved]
  - Weight decreased [Recovered/Resolved]
  - Asthenia [Recovered/Resolved]
